FAERS Safety Report 7820253 (Version 2)
Quarter: 2013Q3

REPORT INFORMATION
  Report Type: Report from Study
  Country: FR (occurrence: FR)
  Receive Date: 20110221
  Receipt Date: 20130801
  Transmission Date: 20140515
  Serious: Yes (Hospitalization)
  Sender: FDA-Public Use
  Company Number: FR-ROCHE-759602

PATIENT
  Age: 69 Year
  Sex: Male
  Weight: 59.6 kg

DRUGS (12)
  1. MYCOPHENOLATE MOFETIL [Suspect]
     Indication: PROPHYLAXIS AGAINST TRANSPLANT REJECTION
     Route: 048
  2. EVEROLIMUS [Suspect]
     Indication: PROPHYLAXIS AGAINST TRANSPLANT REJECTION
     Route: 048
     Dates: start: 20101129
  3. PREDNISONE [Suspect]
     Indication: PROPHYLAXIS AGAINST TRANSPLANT REJECTION
     Route: 048
     Dates: start: 20101201
  4. BACTRIM [Concomitant]
     Route: 065
  5. ROVALCYTE [Concomitant]
     Route: 065
  6. OMEPRAZOLE [Concomitant]
     Route: 065
  7. PLAQUENIL [Concomitant]
     Route: 065
  8. FERROUS SULFATE [Concomitant]
     Route: 065
  9. DETENSIEL [Concomitant]
     Route: 065
  10. OMIX [Concomitant]
     Route: 065
  11. AMLOR [Concomitant]
     Route: 065
  12. FLUINDIONE [Concomitant]
     Route: 065

REACTIONS (2)
  - Transplant rejection [Recovered/Resolved]
  - Pulmonary oedema [Recovered/Resolved]
